FAERS Safety Report 7795312-8 (Version None)
Quarter: 2011Q4

REPORT INFORMATION
  Report Type: 
  Country: None (occurrence: None)
  Receive Date: 20111004
  Receipt Date: 20111003
  Transmission Date: 20120403
  Serious: Yes (Other)
  Sender: FDA-Public Use
  Company Number: PHHY2011ES87046

PATIENT
  Age: 81 Year
  Sex: Female

DRUGS (6)
  1. ZOMETA [Suspect]
     Indication: BREAST CANCER
     Route: 042
     Dates: start: 20090101, end: 20110101
  2. NOLOTIL [Concomitant]
     Dates: start: 20080101
  3. CARVEDILOL [Concomitant]
     Dates: start: 20090101
  4. ENALAPRIL MALEATE [Concomitant]
     Indication: HYPERTENSION
     Route: 048
     Dates: start: 20090101
  5. OMEPRAZOLE [Concomitant]
     Dates: start: 20080101
  6. FASLODEX [Concomitant]
     Dates: start: 20080101

REACTIONS (1)
  - OSTEONECROSIS OF JAW [None]
